FAERS Safety Report 6963235-X (Version None)
Quarter: 2010Q3

REPORT INFORMATION
  Report Type: 
  Country: None (occurrence: None)
  Receive Date: 20100831
  Receipt Date: 20100816
  Transmission Date: 20110219
  Serious: Yes (Hospitalization, Disabling)
  Sender: FDA-Public Use
  Company Number: 2009SP040696

PATIENT
  Age: 20 Year
  Sex: Female
  Weight: 65.7716 kg

DRUGS (3)
  1. NUVARING [Suspect]
     Indication: CONTRACEPTION
     Dates: start: 20070101, end: 20071201
  2. SOMATROPIN [Concomitant]
  3. PHENERGAN [Concomitant]

REACTIONS (16)
  - CEREBRAL INFARCTION [None]
  - CEREBROVASCULAR ACCIDENT [None]
  - CEREBROVASCULAR DISORDER [None]
  - COAGULATION FACTOR V LEVEL INCREASED [None]
  - CONVULSION [None]
  - GASTRITIS [None]
  - GASTRITIS EROSIVE [None]
  - GRAND MAL CONVULSION [None]
  - HYPOKALAEMIA [None]
  - LEUKOCYTOSIS [None]
  - MALFORMATION VENOUS [None]
  - NAUSEA [None]
  - PROTEIN C INCREASED [None]
  - PULMONARY EMBOLISM [None]
  - SUPERIOR SAGITTAL SINUS THROMBOSIS [None]
  - VOMITING [None]
